FAERS Safety Report 9546795 (Version 2)
Quarter: 2013Q4

REPORT INFORMATION
  Report Type: Report from Study
  Country: US (occurrence: US)
  Receive Date: 20130924
  Receipt Date: 20131008
  Transmission Date: 20140711
  Serious: Yes (Hospitalization)
  Sender: FDA-Public Use
  Company Number: US-ROCHE-1277546

PATIENT
  Sex: Female

DRUGS (19)
  1. XOLAIR [Suspect]
     Indication: ASTHMA
     Dosage: 150 MG SOLUTION RECONSTITUTED IN 225 MG AND RECOMMENDED: 225 MG PER 2 WEEKS
     Route: 065
     Dates: end: 201211
  2. KLONOPIN [Suspect]
     Indication: PRODUCT USED FOR UNKNOWN INDICATION
     Dosage: 1-2 TABS QHS 1-2 DAILY
     Route: 065
  3. SYMBICORT [Concomitant]
     Dosage: 160-4.5 MCG/ACT 2 PUFFS BID
     Route: 065
  4. SPIRIVA HANDIHALER [Concomitant]
     Dosage: 18 MCG
     Route: 065
  5. THEOPHYLLINE [Concomitant]
     Dosage: 2 TABLETS BID
     Route: 065
  6. XOPENEX HFA [Concomitant]
     Dosage: 45 MCG/ACT, 2PUFFS QID, PRN (AEROSOL)
     Route: 065
  7. NORVASC [Concomitant]
     Route: 065
  8. TOPROL XL [Concomitant]
     Route: 065
  9. ZETIA [Concomitant]
     Route: 065
  10. ZOCOR [Concomitant]
     Dosage: EVERY EVENING
     Route: 065
  11. EPIPEN [Concomitant]
     Dosage: 0.3MG/0.3ML (1:1000) DEVICE AS DIRECTED PRN
     Route: 065
  12. VALIUM [Concomitant]
     Dosage: 1 TABLET TID PRN
     Route: 065
  13. TRAMADOL HCL [Concomitant]
     Dosage: TAKE 1 TABLET BY MOUTH EVERY 6H AS NEEDED
     Route: 048
  14. QVAR [Concomitant]
     Dosage: 80 MCG/ACT, 2 PUFF QHS
     Route: 065
  15. XOPENEX [Concomitant]
     Dosage: 1.25MG/3ML, PRN
     Route: 065
  16. TEMAZEPAM CAPSULES [Concomitant]
     Dosage: AT BEDTIME, AS NEEDED ONCE A DAY
     Route: 065
  17. TEMAZEPAM CAPSULES [Concomitant]
     Dosage: AT BEDTIME, AS NEEDED ONCE A DAY
     Route: 065
  18. MEGESTROL ACETATE [Concomitant]
     Dosage: 1 TABLET TWICE A  DAY
     Route: 065
  19. NEXIUM [Concomitant]
     Route: 065

REACTIONS (5)
  - Hospitalisation [Unknown]
  - Bronchitis [Unknown]
  - Abdominal pain [Unknown]
  - Post gastric surgery syndrome [Unknown]
  - Neutropenia [Unknown]
